FAERS Safety Report 4822087-4 (Version None)
Quarter: 2005Q4

REPORT INFORMATION
  Report Type: 
  Country: None (occurrence: None)
  Receive Date: 20051103
  Receipt Date: 20051021
  Transmission Date: 20060501
  Serious: Yes (Other)
  Sender: FDA-Public Use
  Company Number: 2005144662

PATIENT
  Age: 49 Year
  Sex: Male
  Weight: 80.8 kg

DRUGS (2)
  1. SUDAFED 12 HOUR [Suspect]
     Indication: NASAL CONGESTION
     Dosage: 60 MG BID DAILY ORAL
     Route: 048
     Dates: start: 20050203, end: 20050218
  2. MONTELUKAST (MONTELUKAST) [Suspect]
     Indication: RHINITIS ALLERGIC
     Dosage: 10 MG DAILY ORAL
     Route: 048
     Dates: start: 20050203, end: 20050302

REACTIONS (1)
  - ERECTILE DYSFUNCTION [None]
